FAERS Safety Report 7706248-2 (Version None)
Quarter: 2011Q3

REPORT INFORMATION
  Report Type: 
  Country: None (occurrence: None)
  Receive Date: 20110824
  Receipt Date: 20110817
  Transmission Date: 20111222
  Serious: Yes (Other)
  Sender: FDA-Public Use
  Company Number: US-ROCHE-779573

PATIENT
  Sex: Male
  Weight: 51.7 kg

DRUGS (3)
  1. CLARITIN [Concomitant]
  2. ACCUTANE [Suspect]
     Route: 065
     Dates: start: 19981228, end: 19990627
  3. ACCUTANE [Suspect]
     Indication: ACNE
     Route: 065
     Dates: start: 19980108, end: 19980208

REACTIONS (5)
  - CROHN'S DISEASE [None]
  - BONE PAIN [None]
  - INFLAMMATORY BOWEL DISEASE [None]
  - INTESTINAL OBSTRUCTION [None]
  - DEPRESSION [None]
